FAERS Safety Report 6207795-5 (Version None)
Quarter: 2009Q2

REPORT INFORMATION
  Report Type: 
  Country: None (occurrence: None)
  Receive Date: 20090522
  Receipt Date: 20090508
  Transmission Date: 20091009
  Serious: Yes (Other)
  Sender: FDA-Public Use
  Company Number: 230121K09AUS

PATIENT
  Sex: Female

DRUGS (1)
  1. REBIF [Suspect]
     Indication: RELAPSING-REMITTING MULTIPLE SCLEROSIS
     Dosage: 44 MCG, 4 IN 1 WEEKS, SUBCUTANEOUS
     Route: 058
     Dates: start: 20081224, end: 20090424

REACTIONS (7)
  - FATIGUE [None]
  - INCREASED TENDENCY TO BRUISE [None]
  - LYMPHOCYTE COUNT INCREASED [None]
  - MALAISE [None]
  - NEUTROPHIL COUNT DECREASED [None]
  - PLATELET COUNT DECREASED [None]
  - WHITE BLOOD CELL COUNT DECREASED [None]
